FAERS Safety Report 5039259-9 (Version None)
Quarter: 2006Q2

REPORT INFORMATION
  Report Type: 
  Country: None (occurrence: None)
  Receive Date: 20060629
  Receipt Date: 20060620
  Transmission Date: 20061013
  Serious: Yes (Other)
  Sender: FDA-Public Use
  Company Number: US-ROCHE-452691

PATIENT

DRUGS (2)
  1. XELODA [Suspect]
     Route: 048
  2. XELODA [Suspect]
     Route: 048

REACTIONS (2)
  - CONVULSION [None]
  - HYPERAMMONAEMIA [None]
